FAERS Safety Report 17011032 (Version 1)
Quarter: 2019Q4

REPORT INFORMATION
  Report Type: Spontaneous
  Country: GB (occurrence: GB)
  Receive Date: 20191108
  Receipt Date: 20191108
  Transmission Date: 20200122
  Serious: Yes (Other)
  Sender: FDA-Public Use
  Company Number: GB-GLAXOSMITHKLINE-GB2019200673

PATIENT
  Age: 13 Year
  Sex: Female
  Weight: 52 kg

DRUGS (3)
  1. MERCAPTOPURINE ANHYDROUS [Concomitant]
     Active Substance: MERCAPTOPURINE
     Indication: PRODUCT USED FOR UNKNOWN INDICATION
     Dosage: UNK
     Route: 065
  2. METHOTREXATE. [Concomitant]
     Active Substance: METHOTREXATE
     Indication: PRODUCT USED FOR UNKNOWN INDICATION
     Dosage: UNK
     Route: 065
  3. ATOVAQUONE. [Suspect]
     Active Substance: ATOVAQUONE
     Indication: ANTIFUNGAL PROPHYLAXIS
     Dosage: 1500 MG, UNK
     Route: 048
     Dates: start: 20181108, end: 20181126

REACTIONS (3)
  - Stevens-Johnson syndrome [Recovering/Resolving]
  - Eye pain [Unknown]
  - Lip ulceration [Unknown]

NARRATIVE: CASE EVENT DATE: 20181123
